FAERS Safety Report 23213764 (Version 1)
Quarter: 2023Q4

REPORT INFORMATION
  Report Type: Spontaneous
  Country: DE (occurrence: None)
  Receive Date: 20231121
  Receipt Date: 20231121
  Transmission Date: 20240110
  Serious: Yes (Other)
  Sender: FDA-Public Use
  Company Number: 2023A237771

PATIENT
  Sex: Male
  Weight: 52 kg

DRUGS (2)
  1. SELUMETINIB [Suspect]
     Active Substance: SELUMETINIB
     Indication: Neurofibroma
     Route: 048
     Dates: start: 20211011
  2. TRAMETINIB [Concomitant]
     Active Substance: TRAMETINIB
     Indication: Neurofibroma
     Route: 048
     Dates: start: 20210620

REACTIONS (2)
  - Neurofibrosarcoma [Unknown]
  - Peripheral nerve lesion [Unknown]
